FAERS Safety Report 8459439-X (Version None)
Quarter: 2012Q2

REPORT INFORMATION
  Report Type: 
  Country: None (occurrence: None)
  Receive Date: 20120622
  Receipt Date: 20120618
  Transmission Date: 20120825
  Serious: Yes (Other)
  Sender: FDA-Public Use
  Company Number: US-PFIZER INC-2012124241

PATIENT
  Sex: Female
  Weight: 58.957 kg

DRUGS (16)
  1. LIPITOR [Suspect]
     Indication: BLOOD CHOLESTEROL INCREASED
     Dosage: 10 MG, 1X/DAY
     Route: 048
     Dates: start: 20050101
  2. LIPITOR [Suspect]
     Indication: HYPERLIPIDAEMIA
  3. ATORVASTATIN CALCIUM [Suspect]
     Indication: BLOOD CHOLESTEROL INCREASED
     Dosage: 10 MG, 1X/DAY
     Route: 048
     Dates: end: 20120601
  4. HYZAAR [Suspect]
     Indication: HYPERTENSION
     Dosage: 100MG/ 25MG,DAILY
  5. PRILOSEC [Concomitant]
     Indication: GASTROOESOPHAGEAL REFLUX DISEASE
     Dosage: 20 MG, TWICE A DAY
  6. ASPIRIN [Concomitant]
     Indication: CARDIAC DISORDER
     Dosage: 81 MG, DAILY
  7. PREDNISONE [Concomitant]
     Indication: POLYMYALGIA RHEUMATICA
     Dosage: 7.5 MG IN THE MORNING AND 5 MG IN THE EVENING
  8. ATORVASTATIN CALCIUM [Suspect]
     Indication: HYPERTENSION
  9. NAPROXEN (ALEVE) [Concomitant]
     Indication: PAIN IN EXTREMITY
  10. ATENOLOL [Suspect]
  11. VITAMIN D [Concomitant]
     Indication: BONE DISORDER
     Dosage: 1000 IU, DAILY
  12. VITAMIN B-12 [Concomitant]
     Dosage: 200 MG, DAILY
  13. MULTI-VITAMINS [Concomitant]
     Dosage: UNK, DAILY
  14. NAPROXEN (ALEVE) [Concomitant]
     Indication: ARTHRALGIA
     Dosage: 220 MG, DAILY
  15. ATENOLOL [Suspect]
     Indication: HYPERTENSION
     Dosage: 50 MG, DAILY
  16. NAPROXEN (ALEVE) [Concomitant]
     Indication: ARTHRITIS

REACTIONS (3)
  - ALOPECIA [None]
  - HYPERTENSION [None]
  - PAIN IN EXTREMITY [None]
